FAERS Safety Report 8859987 (Version 2)
Quarter: 2012Q4

REPORT INFORMATION
  Report Type: Report from Study
  Country: JP (occurrence: JP)
  Receive Date: 20121025
  Receipt Date: 20121101
  Transmission Date: 20130627
  Serious: Yes (Death, Hospitalization)
  Sender: FDA-Public Use
  Company Number: JP-PFIZER INC-2012262601

PATIENT
  Age: 52 Year
  Sex: Male
  Weight: 92 kg

DRUGS (13)
  1. TEMSIROLIMUS [Suspect]
     Indication: RENAL CELL CARCINOMA
     Dosage: 20 mg, UNK
     Dates: start: 20110530
  2. TEMSIROLIMUS [Suspect]
     Dosage: 25 mg, weekly
     Dates: start: 20110620, end: 20120220
  3. CHLOR-TRIMETON [Concomitant]
     Indication: PROPHYLAXIS
     Dosage: 10 mg, 1x/day
     Route: 042
  4. ESPO [Concomitant]
     Dosage: 2000 units once in two weeks
     Route: 058
     Dates: start: 20110502, end: 20110711
  5. NOVORAPID [Concomitant]
     Dosage: 5-3-5 units daily
     Route: 058
  6. LANTUS [Concomitant]
     Dosage: 4 units daily
     Dates: end: 20110612
  7. BLOPRESS [Concomitant]
     Dosage: 12 mg, 1x/day
     Route: 048
  8. ADALAT CR [Concomitant]
     Dosage: 20 mg, 2x/day
     Route: 048
  9. CARDENALIN [Concomitant]
     Dosage: 2 mg, 2x/day
     Route: 048
  10. THYRADIN S [Concomitant]
     Dosage: 50 mg, 1x/day
     Route: 048
  11. LASIX [Concomitant]
     Dosage: 40 mg, 2x/day
     Route: 048
  12. ALDACTONE-A [Concomitant]
     Dosage: 50 mg, 2x/day
     Route: 048
  13. ALLOPURINOL [Concomitant]
     Dosage: 50 mg, 1x/day
     Route: 048

REACTIONS (3)
  - Disease progression [Fatal]
  - Renal cell carcinoma [Fatal]
  - Pancreatitis acute [Recovering/Resolving]
